FAERS Safety Report 15010013 (Version 2)
Quarter: 2018Q3

REPORT INFORMATION
  Report Type: Spontaneous
  Country: US (occurrence: US)
  Receive Date: 20180614
  Receipt Date: 20180802
  Transmission Date: 20181010
  Serious: No
  Sender: FDA-Public Use
  Company Number: US-PFIZER INC-2018240594

PATIENT
  Sex: Female

DRUGS (1)
  1. ADVIL [Suspect]
     Active Substance: IBUPROFEN
     Dosage: 200 MG, 2X/DAY(ONCE WITH BREAKFAST AND ONCE WITH DINNER)
     Route: 048

REACTIONS (2)
  - Intentional product misuse [Unknown]
  - Arthropathy [Unknown]
